FAERS Safety Report 13483886 (Version 1)
Quarter: 2017Q2

REPORT INFORMATION
  Report Type: Spontaneous
  Country: US (occurrence: US)
  Receive Date: 20170425
  Receipt Date: 20170425
  Transmission Date: 20170830
  Serious: Yes (Other)
  Sender: FDA-Public Use
  Company Number: None

PATIENT
  Age: 5 Year
  Sex: Male
  Weight: 18 kg

DRUGS (3)
  1. CHILDREN^S ALLEGRA [Concomitant]
  2. MONTELUKAST SOD 5 MG TAB CHEW [Suspect]
     Active Substance: MONTELUKAST SODIUM
     Indication: MULTIPLE ALLERGIES
     Dosage: ?          QUANTITY:1 TABLET(S);?
     Route: 048
     Dates: start: 20170404, end: 20170421
  3. FLUTICASONE PROPIONATE. [Concomitant]
     Active Substance: FLUTICASONE PROPIONATE

REACTIONS (7)
  - Mydriasis [None]
  - Sleep terror [None]
  - Muscle spasticity [None]
  - Memory impairment [None]
  - Tremor [None]
  - Fear [None]
  - Screaming [None]

NARRATIVE: CASE EVENT DATE: 20170424
